FAERS Safety Report 14147686 (Version 1)
Quarter: 2017Q4

REPORT INFORMATION
  Report Type: Report from Study
  Country: US (occurrence: US)
  Receive Date: 20171101
  Receipt Date: 20171101
  Transmission Date: 20180321
  Serious: Yes (Other)
  Sender: FDA-Public Use
  Company Number: US-AMGEN-USASL2017161790

PATIENT
  Age: 73 Year
  Sex: Male

DRUGS (1)
  1. NPLATE [Suspect]
     Active Substance: ROMIPLOSTIM
     Indication: IMMUNE THROMBOCYTOPENIC PURPURA
     Dosage: 650 MUG, QWK
     Route: 065

REACTIONS (6)
  - Cystitis [Unknown]
  - Drug effect decreased [Recovering/Resolving]
  - Herpes zoster [Unknown]
  - Constipation [Unknown]
  - Diverticulitis [Unknown]
  - Pain [Unknown]
